FAERS Safety Report 6838361-6 (Version None)
Quarter: 2010Q3

REPORT INFORMATION
  Report Type: 
  Country: None (occurrence: None)
  Receive Date: 20100713
  Receipt Date: 20070609
  Transmission Date: 20110219
  Serious: No
  Sender: FDA-Public Use
  Company Number: US-PFIZER INC-2007048707

PATIENT
  Sex: Female
  Weight: 65 kg

DRUGS (3)
  1. CHANTIX [Suspect]
     Indication: SMOKING CESSATION THERAPY
     Dates: start: 20070602
  2. PSEUDOEPHEDRINE [Concomitant]
     Indication: HYPERSENSITIVITY
  3. ALL OTHER THERAPEUTIC PRODUCTS [Concomitant]
     Indication: HYPERSENSITIVITY

REACTIONS (1)
  - VULVOVAGINAL MYCOTIC INFECTION [None]
